FAERS Safety Report 7778221-X (Version None)
Quarter: 2011Q3

REPORT INFORMATION
  Report Type: 
  Country: None (occurrence: None)
  Receive Date: 20110926
  Receipt Date: 20110920
  Transmission Date: 20111222
  Serious: Yes (Other)
  Sender: FDA-Public Use
  Company Number: GB-MERCK-1109GBR00073

PATIENT
  Age: 68 Year
  Sex: Male
  Weight: 106 kg

DRUGS (13)
  1. MESALAMINE [Concomitant]
     Route: 065
     Dates: start: 20100101
  2. PROPRANOLOL HYDROCHLORIDE [Concomitant]
     Route: 065
     Dates: start: 20010101
  3. INSULIN LISPRO [Concomitant]
     Route: 058
     Dates: start: 20100301
  4. QUININE SULFATE [Concomitant]
     Route: 065
     Dates: start: 20060101
  5. ACETAMINOPHEN AND DIHYDROCODEINE BITARTRATE [Concomitant]
     Route: 065
  6. JANUVIA [Suspect]
     Route: 048
     Dates: start: 20110731, end: 20110810
  7. ASPIRIN [Concomitant]
     Route: 065
     Dates: start: 20000401
  8. SILDENAFIL CITRATE [Concomitant]
     Route: 065
     Dates: start: 20080101
  9. ACETAMINOPHEN AND CODEINE [Concomitant]
     Route: 065
  10. METFORMIN [Concomitant]
     Route: 065
     Dates: start: 20010101
  11. MEBEVERINE HYDROCHLORIDE [Concomitant]
     Route: 065
     Dates: start: 20000101
  12. OMEPRAZOLE [Concomitant]
     Route: 065
     Dates: start: 20040101
  13. ZOCOR [Concomitant]
     Route: 048
     Dates: start: 20060101

REACTIONS (3)
  - PAIN IN EXTREMITY [None]
  - BLISTER [None]
  - ERYTHEMA [None]
